FAERS Safety Report 23945356 (Version 3)
Quarter: 2024Q3

REPORT INFORMATION
  Report Type: Spontaneous
  Country: US (occurrence: US)
  Receive Date: 20240606
  Receipt Date: 20240715
  Transmission Date: 20241017
  Serious: Yes (Death, Other)
  Sender: ALKERMES
  Company Number: US-ALKERMES INC.-ALK-2024-001492

PATIENT
  Sex: Male
  Weight: 68.299 kg

DRUGS (11)
  1. VIVITROL [Suspect]
     Active Substance: NALTREXONE
     Indication: Alcoholism
     Dosage: 380 MILLIGRAM, Q28D
     Route: 030
     Dates: start: 20240321
  2. AMLODIPINA + OLMESARTAN MEDOXOMILO GENERIS [Concomitant]
     Indication: Product used for unknown indication
     Dosage: 10MG/40MG, QD
     Route: 048
     Dates: start: 20240129
  3. FLUTICASONE PROPIONATE [Concomitant]
     Active Substance: FLUTICASONE PROPIONATE
     Indication: Product used for unknown indication
     Dosage: 50 MICROGRAM
     Route: 045
     Dates: start: 20240430
  4. HYDROXYZINE HYDROCHLORIDE [Concomitant]
     Active Substance: HYDROXYZINE HYDROCHLORIDE
     Indication: Psychophysiologic insomnia
     Dosage: 50 MILLIGRAM, QD
     Route: 048
     Dates: start: 20231120
  5. HYDROXYZINE PAMOATE [Concomitant]
     Active Substance: HYDROXYZINE PAMOATE
     Indication: Psychophysiologic insomnia
     Dosage: 50 MILLIGRAM, QHS
     Route: 048
     Dates: start: 20240416
  6. NALTREXONE [NALTREXONE HYDROCHLORIDE] [Concomitant]
     Indication: Alcoholism
     Dosage: 50 MILLIGRAM, QD
     Route: 048
     Dates: start: 20240221
  7. NEBIVOLOL HYDROCHLORIDE [Concomitant]
     Active Substance: NEBIVOLOL HYDROCHLORIDE
     Indication: Product used for unknown indication
     Dosage: 5 MILLIGRAM, QD
     Route: 048
     Dates: start: 20240327
  8. OMEPRAZOLE SODIUM [Concomitant]
     Active Substance: OMEPRAZOLE SODIUM
     Indication: Product used for unknown indication
     Dosage: 20 MILLIGRAM, QD
     Route: 048
     Dates: start: 20240129
  9. SERTRALINE [Concomitant]
     Active Substance: SERTRALINE HYDROCHLORIDE
     Indication: Major depression
     Dosage: 100 MILLIGRAM, QD
     Route: 048
     Dates: start: 20240412
  10. SERTRALINE [Concomitant]
     Active Substance: SERTRALINE HYDROCHLORIDE
     Dosage: 50 MILLIGRAM, QD
     Route: 048
     Dates: start: 20240404
  11. TRAZODONE [Concomitant]
     Active Substance: TRAZODONE HYDROCHLORIDE
     Indication: Psychophysiologic insomnia
     Dosage: 100 MILLIGRAM, QHS
     Route: 048
     Dates: start: 20240331

REACTIONS (4)
  - Loss of consciousness [Recovered/Resolved]
  - Completed suicide [Fatal]
  - Alcohol abuse [Unknown]
  - Blood pressure increased [Recovered/Resolved]

NARRATIVE: CASE EVENT DATE: 20240101
